FAERS Safety Report 5936877-8 (Version None)
Quarter: 2008Q4

REPORT INFORMATION
  Report Type: 
  Country: None (occurrence: None)
  Receive Date: 20081031
  Receipt Date: 20081021
  Transmission Date: 20090506
  Serious: Yes (Other)
  Sender: FDA-Public Use
  Company Number: GB-JNJFOC-20080905857

PATIENT
  Sex: Male

DRUGS (2)
  1. TOPAMAX [Suspect]
     Indication: EPILEPSY
     Route: 048
  2. VALPROATE SODIUM [Concomitant]
     Indication: EPILEPSY

REACTIONS (5)
  - ATAXIA [None]
  - CLUMSINESS [None]
  - DECREASED APPETITE [None]
  - DROP ATTACKS [None]
  - SOMNOLENCE [None]
